FAERS Safety Report 15226395 (Version 1)
Quarter: 2018Q3

REPORT INFORMATION
  Report Type: Spontaneous
  Country: BR (occurrence: BR)
  Receive Date: 20180801
  Receipt Date: 20180801
  Transmission Date: 20181010
  Serious: Yes (Other)
  Sender: FDA-Public Use
  Company Number: BR-ABBVIE-18K-020-2437671-00

PATIENT

DRUGS (4)
  1. HUMIRA [Suspect]
     Active Substance: ADALIMUMAB
     Indication: CROHN^S DISEASE
     Route: 058
  2. VIMOVO [Concomitant]
     Active Substance: ESOMEPRAZOLE MAGNESIUM\NAPROXEN
     Indication: PRODUCT USED FOR UNKNOWN INDICATION
  3. PREDNISONE. [Concomitant]
     Active Substance: PREDNISONE
     Indication: PRODUCT USED FOR UNKNOWN INDICATION
  4. IMURAN [Concomitant]
     Active Substance: AZATHIOPRINE
     Indication: PRODUCT USED FOR UNKNOWN INDICATION

REACTIONS (10)
  - Autoimmune hepatitis [Unknown]
  - Poor peripheral circulation [Unknown]
  - Bacterial infection [Unknown]
  - Fatigue [Recovering/Resolving]
  - Blood pressure decreased [Unknown]
  - Abdominal pain [Unknown]
  - Raynaud^s phenomenon [Unknown]
  - Decreased appetite [Unknown]
  - Hepatic enzyme abnormal [Unknown]
  - Gamma-glutamyltransferase increased [Unknown]
